FAERS Safety Report 5534587-2 (Version None)
Quarter: 2007Q4

REPORT INFORMATION
  Report Type: 
  Country: None (occurrence: None)
  Receive Date: 20071120
  Receipt Date: 20071015
  Transmission Date: 20080405
  Serious: No
  Sender: FDA-Public Use
  Company Number: WAES 0710USA03113

PATIENT
  Age: 78 Year
  Sex: Male

DRUGS (3)
  1. JANUVIA [Suspect]
     Indication: TYPE 2 DIABETES MELLITUS
     Dosage: PO
     Route: 048
     Dates: start: 20070701
  2. GLUCOTROL XL [Concomitant]
  3. (THERAPY UNSPECIFIED) [Concomitant]

REACTIONS (2)
  - CONSTIPATION [None]
  - RHINORRHOEA [None]
